FAERS Safety Report 11185695 (Version 4)
Quarter: 2016Q1

REPORT INFORMATION
  Report Type: Spontaneous
  Country: FR (occurrence: FR)
  Receive Date: 20150612
  Receipt Date: 20160329
  Transmission Date: 20160525
  Serious: Yes (Hospitalization)
  Sender: FDA-Public Use
  Company Number: FR-PFIZER INC-2015191423

PATIENT
  Age: 84 Year
  Sex: Female

DRUGS (6)
  1. COVERSYL [Concomitant]
     Active Substance: PERINDOPRIL
     Indication: HYPERTENSION
     Dosage: 5 MG, 1X/DAY
     Route: 048
  2. AMLOR [Concomitant]
     Active Substance: AMLODIPINE BESYLATE
     Indication: HYPERTENSION
     Dosage: 5 MG, 1X/DAY
     Route: 048
  3. KARDEGIC [Concomitant]
     Active Substance: ASPIRIN LYSINE
     Indication: MYELOPROLIFERATIVE NEOPLASM
     Dosage: 75 MG, 1X/DAY
     Route: 048
     Dates: start: 2009
  4. TAHOR [Suspect]
     Active Substance: ATORVASTATIN CALCIUM
     Indication: HYPERCHOLESTEROLAEMIA
     Dosage: 20 MG, 1X/DAY
     Route: 048
     Dates: start: 2009
  5. VERCYTE [Suspect]
     Active Substance: PIPOBROMAN
     Indication: MYELOPROLIFERATIVE NEOPLASM
     Dosage: 25-75 MG, DAILY
     Route: 048
     Dates: start: 2013, end: 201504
  6. CORTANCYL [Concomitant]
     Active Substance: PREDNISONE
     Indication: MYELOPROLIFERATIVE NEOPLASM
     Dosage: 25 MG, 1X/DAY
     Route: 048
     Dates: start: 2013, end: 201503

REACTIONS (2)
  - Interstitial lung disease [Recovered/Resolved]
  - Pulmonary mass [Recovered/Resolved with Sequelae]

NARRATIVE: CASE EVENT DATE: 201503
